FAERS Safety Report 26044546 (Version 2)
Quarter: 2025Q4

REPORT INFORMATION
  Report Type: Report from Study
  Country: CA (occurrence: None)
  Receive Date: 20251114
  Receipt Date: 20251121
  Transmission Date: 20260117
  Serious: No
  Sender: APOTEX
  Company Number: CA-APOTEX-2025AP032540

PATIENT
  Sex: Male

DRUGS (2)
  1. LENALIDOMIDE [Suspect]
     Active Substance: LENALIDOMIDE
     Indication: Plasma cell myeloma
     Dosage: 5 MILLIGRAM, QD
     Dates: start: 20220208, end: 2025
  2. LENALIDOMIDE [Suspect]
     Active Substance: LENALIDOMIDE
     Dosage: 5 MILLIGRAM, QD
     Dates: start: 20220208, end: 2025

REACTIONS (2)
  - General physical health deterioration [Unknown]
  - Asthenia [Unknown]
